FAERS Safety Report 12219373 (Version 1)
Quarter: 2016Q1

REPORT INFORMATION
  Report Type: Spontaneous
  Country: PL (occurrence: PL)
  Receive Date: 20160329
  Receipt Date: 20160329
  Transmission Date: 20160526
  Serious: Yes (Hospitalization, Disabling, Other)
  Sender: FDA-Public Use
  Company Number: PL-ROXANE LABORATORIES, INC.-2016-RO-00529RO

PATIENT
  Age: 41 Year
  Sex: Female

DRUGS (3)
  1. MYCOPHENOLATE MOFETIL (CAPSULES) USP [Suspect]
     Active Substance: MYCOPHENOLATE MOFETIL
     Indication: RENAL TRANSPLANT
     Dosage: 2000 MG
     Route: 065
  2. MYCOPHENOLATE MOFETIL (CAPSULES) USP [Suspect]
     Active Substance: MYCOPHENOLATE MOFETIL
     Dosage: 1250 MG
     Route: 065
  3. CYCLOSPORINE. [Suspect]
     Active Substance: CYCLOSPORINE
     Indication: RENAL TRANSPLANT
     Route: 065

REACTIONS (13)
  - Varicella zoster virus infection [Not Recovered/Not Resolved]
  - BK virus infection [Not Recovered/Not Resolved]
  - Cytomegalovirus infection [Recovered/Resolved]
  - Herpes simplex [Unknown]
  - Anaemia [Unknown]
  - Liver disorder [Unknown]
  - Urinary tract infection [Unknown]
  - Necrotising herpetic retinopathy [Not Recovered/Not Resolved]
  - Transplant rejection [Unknown]
  - Kidney fibrosis [Unknown]
  - Renal tubular necrosis [Unknown]
  - Type 2 diabetes mellitus [Unknown]
  - Pneumonia [Unknown]

NARRATIVE: CASE EVENT DATE: 201212
